FAERS Safety Report 12115947 (Version 1)
Quarter: 2016Q1

REPORT INFORMATION
  Report Type: Spontaneous
  Country: US (occurrence: US)
  Receive Date: 20160225
  Receipt Date: 20160225
  Transmission Date: 20160526
  Serious: No
  Sender: FDA-Public Use
  Company Number: US-LANTHEUS-LMI-2015-00521

PATIENT
  Age: 74 Year
  Sex: Male
  Weight: 113 kg

DRUGS (3)
  1. DEFINITY [Suspect]
     Active Substance: PERFLUTREN
     Dosage: DEFINITY DILUTED WITH NORMAL SALINE
     Route: 042
     Dates: start: 20150821, end: 20150821
  2. DEFINITY [Suspect]
     Active Substance: PERFLUTREN
     Dosage: DEFINITY DILUTED WITH NORMAL SALINE
     Route: 042
     Dates: start: 20150821, end: 20150821
  3. DEFINITY [Suspect]
     Active Substance: PERFLUTREN
     Indication: ECHOCARDIOGRAM
     Dosage: DEFINITY DILUTED WITH NORMAL SALINE
     Route: 042
     Dates: start: 20150821, end: 20150821

REACTIONS (2)
  - Muscle spasms [Unknown]
  - Pain [Recovered/Resolved]

NARRATIVE: CASE EVENT DATE: 20150821
